FAERS Safety Report 4490336-0 (Version None)
Quarter: 2004Q4

REPORT INFORMATION
  Report Type: 
  Country: None (occurrence: None)
  Receive Date: 20041102
  Receipt Date: 20041019
  Transmission Date: 20050328
  Serious: Yes (Hospitalization)
  Sender: FDA-Public Use
  Company Number: PHBS2004JP14028

PATIENT
  Age: 46 Year
  Sex: Female

DRUGS (1)
  1. LAMISIL [Suspect]
     Indication: NAIL TINEA
     Dosage: 125 MG/D
     Route: 048
     Dates: start: 20040521, end: 20041010

REACTIONS (3)
  - DYSMENORRHOEA [None]
  - MENSTRUATION IRREGULAR [None]
  - UTERINE LEIOMYOMA [None]
